FAERS Safety Report 8228468-3 (Version None)
Quarter: 2012Q1

REPORT INFORMATION
  Report Type: 
  Country: None (occurrence: None)
  Receive Date: 20120322
  Receipt Date: 20110616
  Transmission Date: 20120608
  Serious: Yes (Death, Hospitalization)
  Sender: FDA-Public Use
  Company Number: US-BRISTOL-MYERS SQUIBB COMPANY-15818479

PATIENT
  Age: 57 Year
  Sex: Female

DRUGS (2)
  1. ERBITUX [Suspect]
     Indication: COLORECTAL CANCER METASTATIC
     Dosage: 21JAN11,21FEB11,21MAR11,18APR11
     Route: 042
     Dates: start: 20101223
  2. IRINOTECAN HCL [Suspect]
     Indication: COLORECTAL CANCER METASTATIC

REACTIONS (2)
  - HYPOMAGNESAEMIA [None]
  - NEOPLASM MALIGNANT [None]
